FAERS Safety Report 8145002-7 (Version None)
Quarter: 2012Q1

REPORT INFORMATION
  Report Type: 
  Country: None (occurrence: None)
  Receive Date: 20120217
  Receipt Date: 20120214
  Transmission Date: 20120608
  Serious: Yes (Other)
  Sender: FDA-Public Use
  Company Number: MY-PFIZER INC-2012040216

PATIENT
  Age: 30 Year
  Sex: Male

DRUGS (3)
  1. PARACETAMOL [Concomitant]
  2. DILANTIN [Suspect]
     Indication: EPILEPSY
     Dosage: 500 MG, 1X/DAY
     Route: 042
     Dates: start: 20101205
  3. RANITIDINE [Concomitant]

REACTIONS (1)
  - THROMBOPHLEBITIS [None]
